FAERS Safety Report 5586500-X (Version None)
Quarter: 2008Q1

REPORT INFORMATION
  Report Type: 
  Country: None (occurrence: None)
  Receive Date: 20080110
  Receipt Date: 20071228
  Transmission Date: 20080703
  Serious: Yes (Hospitalization)
  Sender: FDA-Public Use
  Company Number: FR-TYCO HEALTHCARE/MALLINCKRODT-T200701613

PATIENT

DRUGS (1)
  1. TRAMADOL HCL [Suspect]

REACTIONS (1)
  - HYPONATRAEMIA [None]
